FAERS Safety Report 11073438 (Version 1)
Quarter: 2015Q2

REPORT INFORMATION
  Report Type: Spontaneous
  Country: US (occurrence: US)
  Receive Date: 20150428
  Receipt Date: 20150428
  Transmission Date: 20150821
  Serious: No
  Sender: FDA-Public Use
  Company Number: US-DSJP-DSU-2015-111293

PATIENT
  Age: 83 Year
  Sex: Female
  Weight: 46.71 kg

DRUGS (1)
  1. SAVAYSA [Suspect]
     Active Substance: EDOXABAN TOSYLATE
     Indication: ANTICOAGULANT THERAPY
     Dosage: 30 MG, QD
     Route: 048
     Dates: start: 20150224

REACTIONS (3)
  - Gingival bleeding [Unknown]
  - Epistaxis [Unknown]
  - Thrombosis [Unknown]

NARRATIVE: CASE EVENT DATE: 20150407
